FAERS Safety Report 20204948 (Version 1)
Quarter: 2021Q4

REPORT INFORMATION
  Report Type: Spontaneous
  Country: CN (occurrence: None)
  Receive Date: 20211220
  Receipt Date: 20211220
  Transmission Date: 20220303
  Serious: Yes (Hospitalization)
  Sender: FDA-Public Use
  Company Number: CN-ROCHE-2979648

PATIENT
  Age: 53 Year
  Sex: Female

DRUGS (4)
  1. MABTHERA [Suspect]
     Active Substance: RITUXIMAB
     Indication: Glomerulonephritis membranous
     Dosage: PUMP INJECTION, INJECTION
     Route: 041
     Dates: start: 20210401
  2. HEPARIN SODIUM [Concomitant]
     Active Substance: HEPARIN SODIUM
     Route: 059
     Dates: start: 20210401
  3. LINEZOLID [Concomitant]
     Active Substance: LINEZOLID
     Route: 048
     Dates: start: 20210326
  4. INSULIN ASPART 30 [Concomitant]
     Indication: Hypoglycaemia
     Dosage: DF=UNIT
     Route: 059
     Dates: start: 20210329

REACTIONS (1)
  - Haemoglobin decreased [Recovering/Resolving]

NARRATIVE: CASE EVENT DATE: 20210407
